FAERS Safety Report 8266076-9 (Version None)
Quarter: 2012Q2

REPORT INFORMATION
  Report Type: 
  Country: None (occurrence: None)
  Receive Date: 20120406
  Receipt Date: 20120327
  Transmission Date: 20120825
  Serious: Yes (Life-Threatening, Hospitalization, Other)
  Sender: FDA-Public Use
  Company Number: SE-ABBOTT-12P-150-0919159-00

PATIENT
  Sex: Male

DRUGS (3)
  1. METOPROLOL TARTRATE [Concomitant]
     Indication: PRODUCT USED FOR UNKNOWN INDICATION
  2. LIPITOR [Concomitant]
     Indication: PRODUCT USED FOR UNKNOWN INDICATION
  3. HUMIRA [Suspect]
     Indication: RHEUMATOID ARTHRITIS
     Route: 058
     Dates: end: 20120314

REACTIONS (6)
  - EXTRADURAL ABSCESS [None]
  - DYSURIA [None]
  - INTRASPINAL ABSCESS [None]
  - STAPHYLOCOCCAL SEPSIS [None]
  - MENTAL STATUS CHANGES [None]
  - SPONDYLITIS [None]
